FAERS Safety Report 16893971 (Version 1)
Quarter: 2019Q4

REPORT INFORMATION
  Report Type: Spontaneous
  Country: JP (occurrence: JP)
  Receive Date: 20191008
  Receipt Date: 20191008
  Transmission Date: 20200122
  Serious: Yes (Death, Life-Threatening, Hospitalization)
  Sender: FDA-Public Use
  Company Number: JP-TEVA-2019-JP-1118441

PATIENT
  Age: 61 Year
  Sex: Male

DRUGS (3)
  1. ACYCLOVIR. [Suspect]
     Active Substance: ACYCLOVIR
     Indication: VARICELLA ZOSTER VIRUS INFECTION
     Route: 042
  2. PREDNISOLONE. [Suspect]
     Active Substance: PREDNISOLONE
     Indication: IMMUNOSUPPRESSANT DRUG THERAPY
     Route: 065
  3. PREDNISOLONE. [Suspect]
     Active Substance: PREDNISOLONE
     Indication: GRAFT VERSUS HOST DISEASE IN LIVER

REACTIONS (9)
  - Respiratory failure [Fatal]
  - Acute hepatic failure [Fatal]
  - Disseminated intravascular coagulation [Unknown]
  - Acute kidney injury [Fatal]
  - Drug ineffective [Unknown]
  - Varicella zoster virus infection [Fatal]
  - Thrombocytopenia [Unknown]
  - Altered state of consciousness [Unknown]
  - Ascites [Unknown]
